FAERS Safety Report 5762531-1 (Version None)
Quarter: 2008Q2

REPORT INFORMATION
  Report Type: 
  Country: None (occurrence: None)
  Receive Date: 20080609
  Receipt Date: 20080530
  Transmission Date: 20081010
  Serious: Yes (Hospitalization)
  Sender: FDA-Public Use
  Company Number: B0360129A

PATIENT
  Age: 54 Year
  Sex: Male

DRUGS (9)
  1. PAROXETINE HCL [Suspect]
     Indication: DEPRESSION
     Route: 065
     Dates: start: 20011017, end: 20011211
  2. STALEVO 100 [Suspect]
     Indication: PARKINSON'S DISEASE
  3. MIRTAZAPINE [Suspect]
     Dates: start: 20020201
  4. FLUOXETINE HCL [Concomitant]
  5. GAMANIL [Concomitant]
     Dosage: 70MG TWICE PER DAY
     Dates: start: 20011201, end: 20020101
  6. DIAZEPAM [Concomitant]
     Dates: start: 20011101
  7. SINEMET [Concomitant]
  8. PROPRANOLOL [Concomitant]
     Dosage: 40MG THREE TIMES PER DAY
     Dates: start: 20000701
  9. AMITRIPTYLINE HCL [Concomitant]
     Dosage: 10MG AT NIGHT
     Dates: start: 20080501

REACTIONS (25)
  - AGGRESSION [None]
  - AGITATION [None]
  - ANXIETY DISORDER [None]
  - APATHY [None]
  - DECREASED APPETITE [None]
  - DECREASED INTEREST [None]
  - DEPRESSION [None]
  - EARLY MORNING AWAKENING [None]
  - FEELING GUILTY [None]
  - HALLUCINATION [None]
  - HYPERHIDROSIS [None]
  - MUSCLE SPASMS [None]
  - NEGATIVE THOUGHTS [None]
  - NIGHTMARE [None]
  - PALPITATIONS [None]
  - PANIC ATTACK [None]
  - PARAESTHESIA [None]
  - RESTLESSNESS [None]
  - SLEEP DISORDER [None]
  - SUICIDAL IDEATION [None]
  - TEARFULNESS [None]
  - TREMOR [None]
  - TRISMUS [None]
  - WEIGHT DECREASED [None]
  - WITHDRAWAL SYNDROME [None]
